FAERS Safety Report 11888714 (Version 2)
Quarter: 2016Q1

REPORT INFORMATION
  Report Type: Spontaneous
  Country: US (occurrence: US)
  Receive Date: 20160105
  Receipt Date: 20160122
  Transmission Date: 20160526
  Serious: Yes (Other)
  Sender: FDA-Public Use
  Company Number: US-ASTRAZENECA-2015SF31832

PATIENT
  Age: 23992 Day
  Sex: Male
  Weight: 95.7 kg

DRUGS (3)
  1. TOPROL XL [Suspect]
     Active Substance: METOPROLOL SUCCINATE
     Indication: HYPERTENSION
     Route: 048
     Dates: start: 2005
  2. TOPROL XL [Suspect]
     Active Substance: METOPROLOL SUCCINATE
     Indication: HYPERTENSION
     Dosage: SELOKEN ZOK 100 MG DAILY
     Route: 048
     Dates: start: 201512
  3. TOPROL XL [Suspect]
     Active Substance: METOPROLOL SUCCINATE
     Indication: HYPERTENSION
     Dosage: GENERIC 100 MG DAILY MANY YEARS AGO FOR 2 OR 3 DAYS
     Route: 048

REACTIONS (7)
  - Colon cancer [Unknown]
  - Dyspepsia [Recovered/Resolved]
  - Product container issue [Unknown]
  - Abdominal pain upper [Recovered/Resolved]
  - Hypoaesthesia oral [Recovered/Resolved]
  - Throat irritation [Recovered/Resolved]
  - Product label issue [Unknown]

NARRATIVE: CASE EVENT DATE: 20151222
